FAERS Safety Report 4784508-5 (Version None)
Quarter: 2005Q3

REPORT INFORMATION
  Report Type: 
  Country: None (occurrence: None)
  Receive Date: 20050930
  Receipt Date: 20041203
  Transmission Date: 20060218
  Serious: Yes (Other)
  Sender: FDA-Public Use
  Company Number: GB-GLAXOSMITHKLINE-B0359623A

PATIENT
  Sex: Male

DRUGS (4)
  1. SEROXAT [Suspect]
     Route: 065
     Dates: start: 19980709
  2. DOTHIEPIN HYDROCHLORIDE [Concomitant]
     Route: 065
  3. DUTONIN [Concomitant]
     Route: 065
  4. LORAZEPAM [Concomitant]
     Route: 065
     Dates: start: 19980828

REACTIONS (6)
  - AGGRESSION [None]
  - ANXIETY [None]
  - COMPLETED SUICIDE [None]
  - DRUG WITHDRAWAL SYNDROME [None]
  - ERECTILE DYSFUNCTION [None]
  - FEELING ABNORMAL [None]
